FAERS Safety Report 7409629-X (Version None)
Quarter: 2011Q2

REPORT INFORMATION
  Report Type: 
  Country: None (occurrence: None)
  Receive Date: 20110412
  Receipt Date: 20110406
  Transmission Date: 20111010
  Serious: Yes (Death, Other)
  Sender: FDA-Public Use
  Company Number: FR-PFIZER INC-2011075704

PATIENT
  Age: 85 Year
  Sex: Female

DRUGS (11)
  1. CORVASAL [Concomitant]
     Dosage: 2 MG, 3X/DAY
  2. MOPRAL [Concomitant]
     Dosage: 20 MG, 1X/DAY
  3. SOLUPRED [Concomitant]
     Dosage: 40 MG, 1X/DAY
  4. PREVISCAN [Concomitant]
     Dosage: 0.75 DF DAILY
     Dates: start: 20110114
  5. EUPRESSYL [Concomitant]
     Dosage: UNK
  6. ATARAX [Concomitant]
     Dosage: 1 DF, 1X/DAY
  7. ACETAMINOPHEN AND TRAMADOL HCL [Suspect]
     Dosage: UNK
     Dates: end: 20110115
  8. CORDARONE [Concomitant]
     Dosage: 1 DF, 5 DAYS OUT OF 7
  9. LYRICA [Suspect]
     Dosage: UNK
     Route: 048
     Dates: end: 20110115
  10. PREVISCAN [Concomitant]
     Dosage: 1 DF DAILY
  11. NITRODERM [Concomitant]
     Dosage: UNK

REACTIONS (6)
  - ACUTE RESPIRATORY FAILURE [None]
  - PROTHROMBIN TIME PROLONGED [None]
  - INTERNATIONAL NORMALISED RATIO INCREASED [None]
  - SOMNOLENCE [None]
  - BLOOD POTASSIUM INCREASED [None]
  - C-REACTIVE PROTEIN INCREASED [None]
